FAERS Safety Report 10707258 (Version 1)
Quarter: 2015Q1

REPORT INFORMATION
  Report Type: Spontaneous
  Country: US (occurrence: None)
  Receive Date: 20150112
  Receipt Date: 20150112
  Transmission Date: 20150721
  Serious: No
  Sender: FDA-Public Use
  Company Number: None

PATIENT
  Sex: Male

DRUGS (1)
  1. ENBREL [Suspect]
     Active Substance: ETANERCEPT
     Indication: RHEUMATOID ARTHRITIS
     Dosage: SQ
     Route: 058
     Dates: start: 20141017, end: 20150105

REACTIONS (3)
  - Intestinal obstruction [None]
  - White blood cell count increased [None]
  - Neutrophil count increased [None]
